FAERS Safety Report 21120719 (Version 4)
Quarter: 2022Q3

REPORT INFORMATION
  Report Type: Report from Study
  Country: CN (occurrence: CN)
  Receive Date: 20220722
  Receipt Date: 20220926
  Transmission Date: 20221026
  Serious: Yes (Death)
  Sender: FDA-Public Use
  Company Number: CN-DSJP-DSE-2022-120461

PATIENT
  Age: 81 Year
  Sex: Male
  Weight: 50 kg

DRUGS (4)
  1. EDOXABAN [Suspect]
     Active Substance: EDOXABAN
     Indication: Atrial fibrillation
     Dosage: 30 MG, QD
     Route: 048
     Dates: start: 20220310
  2. TRADITIONAL CHINESE MEDICINE (TCM) DECOCTION [Concomitant]
     Indication: Renal failure
     Dosage: 5 G, TID
     Route: 048
     Dates: start: 20220307
  3. ISOSORBIDE MONONITRATE [Concomitant]
     Active Substance: ISOSORBIDE MONONITRATE
     Indication: Cardiac failure congestive
     Dosage: 40 MG, QD
     Route: 048
     Dates: start: 20220307
  4. FUROSEMIDE [Concomitant]
     Active Substance: FUROSEMIDE
     Indication: Cardiac failure congestive
     Dosage: 20 MG, QD
     Route: 042
     Dates: start: 20220307

REACTIONS (1)
  - Death [Fatal]

NARRATIVE: CASE EVENT DATE: 20220428
